FAERS Safety Report 24061594 (Version 1)
Quarter: 2024Q3

REPORT INFORMATION
  Report Type: Spontaneous
  Country: US (occurrence: None)
  Receive Date: 20240705
  Receipt Date: 20240705
  Transmission Date: 20241016
  Serious: No
  Sender: Public
  Company Number: None

PATIENT
  Age: 46 Year
  Sex: Female

DRUGS (1)
  1. TREMFYA [Suspect]
     Active Substance: GUSELKUMAB
     Indication: Psoriasis
     Dosage: FREQUENCY : AS DIRECTED;?INJECT 100MG SUBCUTANEOUSLY AT WEEK 0 AND WEEK 4 AS DIRECTED.?
     Route: 058
     Dates: start: 202302

REACTIONS (1)
  - Abdominal operation [None]
